FAERS Safety Report 7222985-0 (Version None)
Quarter: 2011Q1

REPORT INFORMATION
  Report Type: 
  Country: None (occurrence: None)
  Receive Date: 20110112
  Receipt Date: 20110110
  Transmission Date: 20110831
  Serious: Yes (Life-Threatening)
  Sender: FDA-Public Use
  Company Number: IT-AMGEN-ITASP2010011979

PATIENT

DRUGS (1)
  1. NPLATE [Suspect]
     Indication: AUTOIMMUNE THROMBOCYTOPENIA
     Dosage: 50 A?G, UNK
     Route: 058
     Dates: start: 20101014, end: 20101209

REACTIONS (1)
  - THROMBOCYTOSIS [None]
